FAERS Safety Report 20015681 (Version 1)
Quarter: 2021Q4

REPORT INFORMATION
  Report Type: Spontaneous
  Country: US (occurrence: None)
  Receive Date: 20211101
  Receipt Date: 20211101
  Transmission Date: 20220304
  Serious: No
  Sender: FDA-Public Use
  Company Number: None

PATIENT
  Age: 63 Year
  Sex: Female
  Weight: 61.69 kg

DRUGS (19)
  1. CAPECITABINE [Suspect]
     Active Substance: CAPECITABINE
     Indication: Neoplasm malignant
     Dosage: FREQUENCY : TWICE A DAY;?
     Route: 048
  2. ACETAMINOPHEN [Concomitant]
     Active Substance: ACETAMINOPHEN
  3. ASPIRIN [Concomitant]
     Active Substance: ASPIRIN
  4. BUPROPION [Concomitant]
     Active Substance: BUPROPION
  5. CITALOPRAM [Concomitant]
     Active Substance: CITALOPRAM HYDROBROMIDE
  6. CLONIDINE [Concomitant]
     Active Substance: CLONIDINE
  7. PROCHLORPERAZINE [Concomitant]
     Active Substance: PROCHLORPERAZINE
  8. DEXAMETHASONE [Concomitant]
     Active Substance: DEXAMETHASONE
  9. FAMOTIDINE [Concomitant]
     Active Substance: FAMOTIDINE
  10. GEMZAR [Concomitant]
     Active Substance: GEMCITABINE HYDROCHLORIDE
  11. KANJINTI [Concomitant]
     Active Substance: TRASTUZUMAB-ANNS
  12. KEYTRUDA [Concomitant]
     Active Substance: PEMBROLIZUMAB
  13. leothyroxine [Concomitant]
  14. LOMOTIL [Concomitant]
     Active Substance: ATROPINE SULFATE\DIPHENOXYLATE HYDROCHLORIDE
  15. METOPROLOL [Concomitant]
     Active Substance: METOPROLOL
  16. NORVASC [Concomitant]
     Active Substance: AMLODIPINE BESYLATE
  17. NYSTATIN [Concomitant]
     Active Substance: NYSTATIN
  18. FUROSEMIDE [Concomitant]
     Active Substance: FUROSEMIDE
  19. TUKYSA [Concomitant]
     Active Substance: TUCATINIB

REACTIONS (1)
  - Disease progression [None]

NARRATIVE: CASE EVENT DATE: 20211101
